FAERS Safety Report 4558310-3 (Version None)
Quarter: 2005Q1

REPORT INFORMATION
  Report Type: 
  Country: None (occurrence: None)
  Receive Date: 20050103
  Receipt Date: 20040929
  Transmission Date: 20050727
  Serious: Yes (Other)
  Sender: FDA-Public Use
  Company Number: 2004UW20494

PATIENT
  Age: 66 Year
  Sex: Female
  Weight: 83.9154 kg

DRUGS (11)
  1. CRESTOR [Suspect]
     Indication: HYPERCHOLESTEROLAEMIA
     Dosage: 10 MG PO
     Route: 048
  2. MEBERAL [Concomitant]
  3. VIOXX [Concomitant]
  4. SLOW-K [Concomitant]
  5. MAGNESIUM OXIDE [Concomitant]
  6. ALDACTAZIDE [Concomitant]
  7. ALTACE [Concomitant]
  8. THYROID TAB [Concomitant]
  9. ASPIRIN [Concomitant]
  10. CALCIUM GLUCONATE [Concomitant]
  11. GLUCOSAMINE/CHRONDROITIN [Concomitant]

REACTIONS (2)
  - DYSPNOEA [None]
  - FATIGUE [None]
